FAERS Safety Report 4982753-7 (Version None)
Quarter: 2006Q2

REPORT INFORMATION
  Report Type: 
  Country: None (occurrence: None)
  Receive Date: 20060425
  Receipt Date: 20050516
  Transmission Date: 20061013
  Serious: Yes (Hospitalization)
  Sender: FDA-Public Use
  Company Number: US-MERCK-0505USA01968

PATIENT
  Age: 50 Year
  Sex: Male

DRUGS (1)
  1. VIOXX [Suspect]
     Route: 048
     Dates: start: 20000101, end: 20040101

REACTIONS (14)
  - ANGINA UNSTABLE [None]
  - ARTERIOSCLEROSIS CORONARY ARTERY [None]
  - CARDIAC DISORDER [None]
  - CARDIAC MURMUR [None]
  - CELLULITIS [None]
  - DEPRESSION [None]
  - DILATATION VENTRICULAR [None]
  - DYSLIPIDAEMIA [None]
  - ECCHYMOSIS [None]
  - HYPERLIPIDAEMIA [None]
  - HYPERTENSION [None]
  - INFLUENZA [None]
  - OBESITY [None]
  - PLANTAR FASCIITIS [None]
